FAERS Safety Report 7638692-6 (Version None)
Quarter: 2011Q3

REPORT INFORMATION
  Report Type: 
  Country: None (occurrence: None)
  Receive Date: 20110727
  Receipt Date: 20110722
  Transmission Date: 20111222
  Serious: Yes (Death)
  Sender: FDA-Public Use
  Company Number: US-AMGEN-QUU422558

PATIENT
  Age: 55 Year
  Sex: Female

DRUGS (3)
  1. CORTICOSTEROID NOS [Concomitant]
     Dosage: UNK UNK, UNK
     Dates: start: 20090314
  2. DANAZOL [Concomitant]
     Dosage: UNK UNK, UNK
     Dates: start: 20090501
  3. NPLATE [Suspect]
     Indication: THROMBOCYTOPENIA
     Dosage: UNK UNK, UNK
     Dates: start: 20090708, end: 20090722

REACTIONS (1)
  - DEATH [None]
